FAERS Safety Report 5422328-9 (Version None)
Quarter: 2007Q3

REPORT INFORMATION
  Report Type: 
  Country: None (occurrence: None)
  Receive Date: 20070820
  Receipt Date: 20070806
  Transmission Date: 20080115
  Serious: Yes (Hospitalization)
  Sender: FDA-Public Use
  Company Number: 230006K07DEU

PATIENT
  Age: 41 Year
  Sex: Female

DRUGS (3)
  1. REBIF [Suspect]
     Indication: MULTIPLE SCLEROSIS
     Dosage: 3 IN 1 WEEKS, SUBCUTANEOUS
     Route: 058
     Dates: start: 20061101, end: 20070710
  2. TRAMADOL HCL [Concomitant]
  3. BUPRENORPHINE HCL [Concomitant]

REACTIONS (2)
  - HYPERSENSITIVITY [None]
  - RHINITIS ALLERGIC [None]
